FAERS Safety Report 18913507 (Version 2)
Quarter: 2021Q1

REPORT INFORMATION
  Report Type: Spontaneous
  Country: US (occurrence: US)
  Receive Date: 20210219
  Receipt Date: 20210305
  Transmission Date: 20210420
  Serious: Yes (Hospitalization, Other)
  Sender: FDA-Public Use
  Company Number: US-AUROBINDO-AUR-APL-2010-01994

PATIENT
  Age: 52 Year
  Sex: Female

DRUGS (18)
  1. DILTIAZEM CD [Suspect]
     Active Substance: DILTIAZEM
     Dosage: 180 MILLIGRAM
     Route: 065
  2. CLONIDINE. [Suspect]
     Active Substance: CLONIDINE
     Indication: PRODUCT USED FOR UNKNOWN INDICATION
     Dosage: 0.2 MILLIGRAM, 3 TIMES A DAY
     Route: 065
  3. HYDRALAZINE [Suspect]
     Active Substance: HYDRALAZINE HYDROCHLORIDE
     Dosage: 10 MILLIGRAM, DAILY
     Route: 065
  4. LABETALOL [Suspect]
     Active Substance: LABETALOL\LABETALOL HYDROCHLORIDE
     Indication: PRODUCT USED FOR UNKNOWN INDICATION
     Dosage: 20 MILLIGRAM, ONCE A DAY
     Route: 042
  5. METOPROLOL. [Suspect]
     Active Substance: METOPROLOL
     Dosage: 100 MILLIGRAM, TWO TIMES A DAY
     Route: 065
  6. DILTIAZEM CD [Suspect]
     Active Substance: DILTIAZEM
     Indication: PRODUCT USED FOR UNKNOWN INDICATION
     Dosage: 180 MILLIGRAM, ONCE A DAY
     Route: 065
  7. HYDRALAZINE [Suspect]
     Active Substance: HYDRALAZINE HYDROCHLORIDE
     Indication: PRODUCT USED FOR UNKNOWN INDICATION
     Dosage: 10 MILLIGRAM, 3 TIMES A DAY
     Route: 065
  8. HYDRALAZINE [Suspect]
     Active Substance: HYDRALAZINE HYDROCHLORIDE
     Dosage: 10 MILLIGRAM
     Route: 065
  9. CLONIDINE. [Suspect]
     Active Substance: CLONIDINE
     Dosage: 0.2 MILLIGRAM
     Route: 048
  10. CLONIDINE. [Suspect]
     Active Substance: CLONIDINE
     Dosage: 0.1 MILLIGRAM
     Route: 065
  11. METOPROLOL. [Suspect]
     Active Substance: METOPROLOL
     Indication: PRODUCT USED FOR UNKNOWN INDICATION
     Dosage: 200 MILLIGRAM, TWO TIMES A DAY
     Route: 065
  12. HYDRALAZINE [Suspect]
     Active Substance: HYDRALAZINE HYDROCHLORIDE
     Dosage: 10 MILLIGRAM
     Route: 065
  13. CLONIDINE. [Suspect]
     Active Substance: CLONIDINE
     Dosage: 0.2 MILLIGRAM, 3 TIMES A DAY
     Route: 065
  14. LOPINAVIR/RITONAVIR [Suspect]
     Active Substance: LOPINAVIR\RITONAVIR
     Indication: PRODUCT USED FOR UNKNOWN INDICATION
     Dosage: UNK UNK, TWO TIMES A DAY, 200/50MG
     Route: 065
  15. NIFEDIPINE XL [Suspect]
     Active Substance: NIFEDIPINE
     Indication: PRODUCT USED FOR UNKNOWN INDICATION
     Dosage: 60 MILLIGRAM, DAILY
     Route: 048
  16. METOPROLOL. [Suspect]
     Active Substance: METOPROLOL
     Dosage: 200 MILLIGRAM, TWO TIMES A DAY
     Route: 065
  17. METOPROLOL. [Suspect]
     Active Substance: METOPROLOL
     Dosage: 200 MILLIGRAM
     Route: 065
  18. LOPINAVIR/RITONAVIR [Suspect]
     Active Substance: LOPINAVIR\RITONAVIR
     Dosage: UNK UNK, TWO TIMES A DAY, 200/50MG
     Route: 065

REACTIONS (7)
  - Atrioventricular block first degree [Unknown]
  - Drug interaction [Unknown]
  - Overdose [Unknown]
  - Confusional state [Unknown]
  - Electrocardiogram abnormal [Unknown]
  - Depressed level of consciousness [Unknown]
  - Hypotension [Recovering/Resolving]
